FAERS Safety Report 14339984 (Version 1)
Quarter: 2017Q4

REPORT INFORMATION
  Report Type: Spontaneous
  Country: US (occurrence: US)
  Receive Date: 20171231
  Receipt Date: 20171231
  Transmission Date: 20180321
  Serious: No
  Sender: FDA-Public Use
  Company Number: US-TEVA-2017-US-839208

PATIENT
  Age: 38 Year
  Sex: Male

DRUGS (6)
  1. FENTORA [Suspect]
     Active Substance: FENTANYL CITRATE
     Indication: BLOOD IMMUNOGLOBULIN G
  2. FENTORA [Suspect]
     Active Substance: FENTANYL CITRATE
     Indication: RHEUMATOID ARTHRITIS
  3. FENTANYL. [Suspect]
     Active Substance: FENTANYL
  4. FENTORA [Suspect]
     Active Substance: FENTANYL CITRATE
     Indication: BRUCELLOSIS
  5. FENTORA [Suspect]
     Active Substance: FENTANYL CITRATE
     Indication: SELECTIVE IGA IMMUNODEFICIENCY
     Route: 065
     Dates: start: 201604, end: 201712
  6. FENTORA [Suspect]
     Active Substance: FENTANYL CITRATE
     Indication: CROHN^S DISEASE

REACTIONS (6)
  - Adjustment disorder [Not Recovered/Not Resolved]
  - Withdrawal syndrome [Not Recovered/Not Resolved]
  - Pain [Not Recovered/Not Resolved]
  - Movement disorder [Not Recovered/Not Resolved]
  - Malaise [Not Recovered/Not Resolved]
  - Drug titration error [Not Recovered/Not Resolved]

NARRATIVE: CASE EVENT DATE: 201604
